FAERS Safety Report 16766814 (Version 1)
Quarter: 2019Q3

REPORT INFORMATION
  Report Type: Report from Study
  Country: CA (occurrence: CA)
  Receive Date: 20190903
  Receipt Date: 20190903
  Transmission Date: 20191005
  Serious: Yes (Other)
  Sender: FDA-Public Use
  Company Number: CA-BRISTOL-MYERS SQUIBB COMPANY-BMS-2018-059998

PATIENT
  Age: 73 Year
  Sex: Female

DRUGS (1)
  1. ABATACEPT [Suspect]
     Active Substance: ABATACEPT
     Indication: RHEUMATOID ARTHRITIS
     Dosage: 750 MILLIGRAM, Q4WK
     Route: 042
     Dates: start: 20081031

REACTIONS (5)
  - Upper limb fracture [Recovering/Resolving]
  - Rhinitis [Unknown]
  - Nasal polyps [Unknown]
  - Fall [Unknown]
  - Product dose omission [Unknown]

NARRATIVE: CASE EVENT DATE: 20180625
